FAERS Safety Report 21997466 (Version 1)
Quarter: 2023Q1

REPORT INFORMATION
  Report Type: Spontaneous
  Country: US (occurrence: None)
  Receive Date: 20230216
  Receipt Date: 20230216
  Transmission Date: 20230418
  Serious: No
  Sender: FDA-Public Use
  Company Number: 2023A025545

PATIENT
  Sex: Female

DRUGS (1)
  1. SYMBICORT [Suspect]
     Active Substance: BUDESONIDE\FORMOTEROL FUMARATE DIHYDRATE
     Indication: Nasal congestion
     Dosage: 2 PUFFS 2 TIMES A DAY
     Route: 055

REACTIONS (5)
  - Sinus disorder [Recovered/Resolved]
  - Sputum discoloured [Recovered/Resolved]
  - Secretion discharge [Recovered/Resolved]
  - Off label use [Unknown]
  - Device defective [Unknown]
